FAERS Safety Report 9149291 (Version 2)
Quarter: 2015Q3

REPORT INFORMATION
  Report Type: Spontaneous
  Country: US (occurrence: US)
  Receive Date: 20130308
  Receipt Date: 20150930
  Transmission Date: 20151125
  Serious: Yes (Other)
  Sender: FDA-Public Use
  Company Number: US-BAYER-2013-028755

PATIENT
  Sex: Female

DRUGS (1)
  1. MIRENA [Suspect]
     Active Substance: LEVONORGESTREL
     Indication: CONTRACEPTION
     Dosage: 20 ?G/D, CONT
     Route: 015
     Dates: start: 201005, end: 20130223

REACTIONS (11)
  - Depressed level of consciousness [None]
  - Fatigue [None]
  - Aphasia [None]
  - Depression [None]
  - Paraesthesia [Recovered/Resolved]
  - Pain [None]
  - Acne [None]
  - Weight increased [None]
  - Alopecia [None]
  - Loss of libido [None]
  - Anxiety [None]

NARRATIVE: CASE EVENT DATE: 2010
